FAERS Safety Report 8601251-2 (Version None)
Quarter: 2012Q3

REPORT INFORMATION
  Report Type: 
  Country: None (occurrence: None)
  Receive Date: 20120817
  Receipt Date: 20120815
  Transmission Date: 20120928
  Serious: Yes (Other)
  Sender: FDA-Public Use
  Company Number: PHHY2012NL070808

PATIENT
  Sex: Female

DRUGS (3)
  1. ZOMETA [Suspect]
     Dosage: 4 MG, ONCE PER 28 DAYS
     Route: 042
     Dates: start: 20120629
  2. ZOMETA [Suspect]
     Dosage: 4 MG, ONCE PER 28 DAYS
     Route: 042
     Dates: start: 20120727
  3. ZOMETA [Suspect]
     Indication: BREAST CANCER METASTATIC
     Dosage: 4 MG, ONCE PER 28 DAYS
     Route: 042
     Dates: start: 20101122

REACTIONS (1)
  - TERMINAL STATE [None]
